FAERS Safety Report 9552580 (Version 1)
Quarter: 2013Q3

REPORT INFORMATION
  Report Type: Spontaneous
  Country: US (occurrence: None)
  Receive Date: 20130924
  Receipt Date: 20130924
  Transmission Date: 20140515
  Serious: Yes (Life-Threatening, Hospitalization)
  Sender: FDA-Public Use
  Company Number: None

PATIENT
  Age: 89 Year
  Sex: Female
  Weight: 60 kg

DRUGS (3)
  1. CEFTRIAXONE, 1 GRAM [Suspect]
     Indication: URINARY TRACT INFECTION
     Route: 042
     Dates: start: 20130529
  2. METOPROLOL [Concomitant]
  3. CULTURELLE [Concomitant]

REACTIONS (3)
  - Hypotension [None]
  - Flushing [None]
  - Dyspnoea [None]
